FAERS Safety Report 9749470 (Version 1)
Quarter: 2013Q4

REPORT INFORMATION
  Report Type: Spontaneous
  Country: GB (occurrence: GB)
  Receive Date: 20131212
  Receipt Date: 20131212
  Transmission Date: 20140711
  Serious: Yes (Other)
  Sender: FDA-Public Use
  Company Number: GB-EISAI INC-E2007-01449-SPO-GB

PATIENT
  Age: 10 Year
  Sex: Female
  Weight: 28 kg

DRUGS (10)
  1. FYCOMPA (PERAMPANEL) [Suspect]
     Indication: EPILEPSY
     Route: 048
     Dates: start: 20130914, end: 2013
  2. FYCOMPA (PERAMPANEL) [Suspect]
     Dosage: REDUCED (DOSE UNKNOWN)
     Route: 048
     Dates: start: 2013
  3. VITAMIN SUPPLEMENT [Concomitant]
     Dosage: UNKNOWN
  4. CLOBAZAM [Concomitant]
     Dosage: UNKNOWN
  5. KETOTIFEN [Concomitant]
     Dosage: UNKNOWN
  6. LANSOPRAZOLE [Concomitant]
     Dosage: UNKNOWN
  7. LEVETIRACETAM [Concomitant]
     Dosage: UNKNOWN
  8. MELATONIN [Concomitant]
     Dosage: UNKNOWN
  9. PHOSPHATE SANDOZ EFFERVESCENT [Concomitant]
     Dosage: UNKNOWN
  10. POTASSIUM CITRATE [Concomitant]
     Dosage: UNKNOWN

REACTIONS (6)
  - Increased bronchial secretion [Not Recovered/Not Resolved]
  - Dysphagia [Not Recovered/Not Resolved]
  - Skin discolouration [Not Recovered/Not Resolved]
  - Epilepsy [Unknown]
  - Retching [Unknown]
  - Nausea [Not Recovered/Not Resolved]
